FAERS Safety Report 12781844 (Version 1)
Quarter: 2016Q3

REPORT INFORMATION
  Report Type: Report from Study
  Country: DE (occurrence: DE)
  Receive Date: 20160926
  Receipt Date: 20160926
  Transmission Date: 20161109
  Serious: Yes (Hospitalization)
  Sender: FDA-Public Use
  Company Number: US-ASTRAZENECA-2016SF02068

PATIENT
  Sex: Male
  Weight: 3 kg

DRUGS (5)
  1. SYNAGIS [Suspect]
     Active Substance: PALIVIZUMAB
     Indication: BRONCHOPULMONARY DYSPLASIA
     Dosage: 89.0MG ONCE/SINGLE ADMINISTRATION
     Route: 030
     Dates: start: 20101214, end: 20101214
  2. SYNAGIS [Suspect]
     Active Substance: PALIVIZUMAB
     Indication: BRONCHOPULMONARY DYSPLASIA
     Dosage: 108.0MG ONCE/SINGLE ADMINISTRATION
     Route: 030
     Dates: start: 20110121, end: 20110121
  3. SYNAGIS [Suspect]
     Active Substance: PALIVIZUMAB
     Indication: BRONCHOPULMONARY DYSPLASIA
     Dosage: 114.0MG ONCE/SINGLE ADMINISTRATION
     Route: 030
     Dates: start: 20110215, end: 20110215
  4. OXYGEN. [Concomitant]
     Active Substance: OXYGEN
  5. SYNAGIS [Suspect]
     Active Substance: PALIVIZUMAB
     Indication: BRONCHOPULMONARY DYSPLASIA
     Dosage: 83.0MG ONCE/SINGLE ADMINISTRATION
     Route: 030
     Dates: start: 20101109, end: 20101109

REACTIONS (1)
  - Pneumonia [Unknown]
